FAERS Safety Report 16227093 (Version 2)
Quarter: 2019Q2

REPORT INFORMATION
  Report Type: Spontaneous
  Country: CA (occurrence: CA)
  Receive Date: 20190423
  Receipt Date: 20190625
  Transmission Date: 20190711
  Serious: Yes (Other)
  Sender: FDA-Public Use
  Company Number: CA-CELLTRION INC.-2019CA020596

PATIENT

DRUGS (8)
  1. INFLECTRA [Suspect]
     Active Substance: INFLIXIMAB-DYYB
     Dosage: 800 MG Q 0,2,6 WEEKS, THEN EVERY 8 WEEKS
     Route: 042
     Dates: start: 20190313
  2. INFLECTRA [Suspect]
     Active Substance: INFLIXIMAB-DYYB
     Indication: COLITIS ULCERATIVE
     Dosage: 800 MG Q 0,2,6 WEEKS, THEN EVERY 8 WEEKS
     Route: 042
     Dates: start: 20190228
  3. METHOTREXATE SODIUM. [Concomitant]
     Active Substance: METHOTREXATE SODIUM
     Dosage: 5 DF(2.5MG TABLETS), WEEKLY
  4. PREDNISONE. [Concomitant]
     Active Substance: PREDNISONE
     Dosage: 5 MG TABLETS, 8 TABLETS TAPER 1 TABLET WEEKLY X 8 WEEKS
     Route: 048
  5. FOLIC ACID. [Concomitant]
     Active Substance: FOLIC ACID
     Dosage: 1 MG, 1X/DAY
     Route: 048
  6. CALCIUM [Concomitant]
     Active Substance: CALCIUM
     Dosage: 2000 MG, 1X/DAY
     Route: 048
  7. CODEINE [Concomitant]
     Active Substance: CODEINE
     Dosage: 1-2 TABLETS, AS NEEDED
  8. VITAMIN D NOS [Concomitant]
     Active Substance: VITAMIN D NOS
     Dosage: 4000 IU, 1X/DAY
     Route: 048

REACTIONS (8)
  - Blood pressure increased [Unknown]
  - Anxiety [Unknown]
  - Flushing [Unknown]
  - Nervousness [Unknown]
  - Clostridium difficile infection [Unknown]
  - Headache [Unknown]
  - Heart rate increased [Unknown]
  - Palpitations [Unknown]
